FAERS Safety Report 22867409 (Version 3)
Quarter: 2023Q4

REPORT INFORMATION
  Report Type: Report from Study
  Country: US (occurrence: US)
  Receive Date: 20230825
  Receipt Date: 20231027
  Transmission Date: 20240110
  Serious: Yes (Other)
  Sender: FDA-Public Use
  Company Number: US-002147023-NVSC2023US181889

PATIENT
  Sex: Male

DRUGS (1)
  1. XIIDRA [Suspect]
     Active Substance: LIFITEGRAST
     Indication: Product used for unknown indication
     Dosage: 1 DRP, BID
     Route: 047
     Dates: start: 20230713

REACTIONS (8)
  - Blindness [Unknown]
  - Vision blurred [Unknown]
  - Eyelid margin crusting [Unknown]
  - Eye pain [Unknown]
  - Visual field defect [Unknown]
  - Product physical consistency issue [Unknown]
  - Product container issue [Unknown]
  - Extra dose administered [Unknown]
